FAERS Safety Report 6407861-5 (Version None)
Quarter: 2009Q4

REPORT INFORMATION
  Report Type: 
  Country: None (occurrence: None)
  Receive Date: 20091015
  Receipt Date: 20091001
  Transmission Date: 20100525
  Serious: Yes (Death)
  Sender: FDA-Public Use
  Company Number: RENA-1000552

PATIENT
  Age: 73 Year
  Sex: Female

DRUGS (1)
  1. RENVELA [Suspect]
     Indication: HYPERPHOSPHATAEMIA
     Dosage: 2.4 G, TID, ORAL; 0.8 G, BID, ORAL
     Route: 048

REACTIONS (1)
  - DEATH [None]
